FAERS Safety Report 17926542 (Version 1)
Quarter: 2020Q2

REPORT INFORMATION
  Report Type: Report from Study
  Country: CN (occurrence: CN)
  Receive Date: 20200623
  Receipt Date: 20200623
  Transmission Date: 20200714
  Serious: Yes (Death, Life-Threatening, Hospitalization, Other)
  Sender: FDA-Public Use
  Company Number: CN-SUN PHARMACEUTICAL INDUSTRIES LTD-2020R1-250340

PATIENT
  Age: 51 Year
  Sex: Female

DRUGS (1)
  1. IMATINIB. [Suspect]
     Active Substance: IMATINIB MESYLATE
     Indication: CHRONIC MYELOID LEUKAEMIA
     Dosage: 400 MILLIGRAM, DAILY
     Route: 065

REACTIONS (6)
  - Death [Fatal]
  - Cerebral haemorrhage [Unknown]
  - Blast crisis in myelogenous leukaemia [Unknown]
  - Epistaxis [Unknown]
  - Fatigue [Unknown]
  - Nausea [Unknown]
